FAERS Safety Report 7552078-4 (Version None)
Quarter: 2011Q2

REPORT INFORMATION
  Report Type: 
  Country: None (occurrence: None)
  Receive Date: 20110616
  Receipt Date: 20110613
  Transmission Date: 20111010
  Serious: Yes (Death, Hospitalization)
  Sender: FDA-Public Use
  Company Number: CL-BRISTOL-MYERS SQUIBB COMPANY-15286941

PATIENT
  Age: 73 Year
  Sex: Male

DRUGS (5)
  1. WARFARIN SODIUM [Suspect]
     Indication: THROMBOSIS PROPHYLAXIS
     Dosage: INTERRUPTED ON: 12SEP10,21SEP10 NO OF COURSE:01
     Route: 048
     Dates: start: 20090921, end: 20100921
  2. PLACEBO [Suspect]
     Indication: THROMBOSIS PROPHYLAXIS
     Dosage: INTERRUPTED ON: 12SEP10,21SEP10
     Route: 048
     Dates: start: 20090921, end: 20100921
  3. ENALAPRIL MALEATE [Concomitant]
     Dates: start: 20050101
  4. ESPIRONOLACTONA [Concomitant]
     Dates: start: 20050101
  5. DIGOXIN [Concomitant]
     Dates: start: 20050101

REACTIONS (3)
  - RESPIRATORY FAILURE [None]
  - HAEMOPTYSIS [None]
  - CARDIAC FAILURE [None]
